FAERS Safety Report 24071388 (Version 1)
Quarter: 2024Q3

REPORT INFORMATION
  Report Type: Report from Study
  Country: US (occurrence: US)
  Receive Date: 20240710
  Receipt Date: 20240710
  Transmission Date: 20241017
  Serious: No
  Sender: ROCHE
  Company Number: US-ROCHE-3513012

PATIENT
  Age: 17 Month
  Sex: Female
  Weight: 10.43 kg

DRUGS (1)
  1. EVRYSDI [Suspect]
     Active Substance: RISDIPLAM
     Indication: Spinal muscular atrophy
     Dosage: TAKE 2.9 ML (2.18 MG) VIA G-TUBE EVERY DAY
     Route: 050

REACTIONS (3)
  - Ear infection [Unknown]
  - Weight decreased [Unknown]
  - Product dose omission issue [Unknown]
